FAERS Safety Report 7293845-4 (Version None)
Quarter: 2011Q1

REPORT INFORMATION
  Report Type: 
  Country: None (occurrence: None)
  Receive Date: 20110203
  Receipt Date: 20110121
  Transmission Date: 20110831
  Serious: Yes (Other)
  Sender: FDA-Public Use
  Company Number: JP-2011-10103

PATIENT
  Age: 88 Year
  Sex: Female

DRUGS (7)
  1. SAMSCA [Suspect]
     Indication: CARDIAC FAILURE
     Dosage: 15MG MILLIGRAM(S), QD, ORAL
     Route: 048
     Dates: start: 20110112, end: 20110112
  2. RESLIN (TRAZODONE HYDROCHLORIDE) TABLET [Concomitant]
  3. LASIX [Concomitant]
  4. LENDORMIN (BROTIZOLAM) TABLET [Concomitant]
  5. BENET (RISEDRONATE SODIUM) TABLET [Concomitant]
  6. PLAVIX [Concomitant]
  7. HEPARIN AND PREPARATIONS (HEPARIN AND PREPARATIONS) [Concomitant]

REACTIONS (1)
  - HYPERNATRAEMIA [None]
